FAERS Safety Report 7912234-X (Version None)
Quarter: 2011Q4

REPORT INFORMATION
  Report Type: 
  Country: None (occurrence: None)
  Receive Date: 20111114
  Receipt Date: 20111108
  Transmission Date: 20120403
  Serious: Yes (Death, Hospitalization, Other)
  Sender: FDA-Public Use
  Company Number: JP-MERCK-1107USA00830

PATIENT
  Age: 57 Year
  Sex: Female

DRUGS (8)
  1. CANDESARTAN CILEXETIL [Concomitant]
     Route: 065
     Dates: start: 20100513
  2. PEPCID RPD [Concomitant]
     Route: 048
     Dates: start: 20101115, end: 20101201
  3. NORVASC [Concomitant]
     Route: 065
     Dates: start: 20100513
  4. JANUVIA [Suspect]
     Indication: TYPE 2 DIABETES MELLITUS
     Route: 048
     Dates: start: 20100121
  5. BEZATOL SR [Concomitant]
     Route: 065
     Dates: start: 20100513
  6. AMARYL [Concomitant]
     Route: 065
     Dates: start: 20100513
  7. NORVASC [Concomitant]
     Route: 065
     Dates: start: 20101201, end: 20110204
  8. FERRUM (FERROUS FUMARATE) [Concomitant]
     Route: 065
     Dates: start: 20110204

REACTIONS (1)
  - PANCREATIC CARCINOMA [None]
